FAERS Safety Report 8489821-6 (Version None)
Quarter: 2012Q3

REPORT INFORMATION
  Report Type: 
  Country: None (occurrence: None)
  Receive Date: 20120705
  Receipt Date: 20120621
  Transmission Date: 20120928
  Serious: Yes (Other)
  Sender: FDA-Public Use
  Company Number: US-ACTELION-A-US2011-56636

PATIENT

DRUGS (5)
  1. RIBOFLAVIN [Concomitant]
  2. TRACLEER [Suspect]
     Indication: PULMONARY ARTERIAL HYPERTENSION
     Dosage: 125 MG, BID
     Route: 048
     Dates: start: 20110202, end: 20111101
  3. NORCO [Concomitant]
  4. VITAMIN D [Concomitant]
  5. DOCUSATE CALCIUM [Concomitant]

REACTIONS (4)
  - CAESAREAN SECTION [None]
  - PLEURAL EFFUSION [None]
  - FOETAL DISORDER [None]
  - PREGNANCY [None]
